FAERS Safety Report 23170353 (Version 1)
Quarter: 2023Q4

REPORT INFORMATION
  Report Type: Report from Study
  Country: US (occurrence: US)
  Receive Date: 20231110
  Receipt Date: 20231110
  Transmission Date: 20240110
  Serious: Yes (Other)
  Sender: FDA-Public Use
  Company Number: US-Accord-383351

PATIENT
  Sex: Male

DRUGS (1)
  1. CLOZAPINE [Suspect]
     Active Substance: CLOZAPINE
     Indication: Psychotic disorder
     Dosage: STRENGTH: 400 MG?STARTED 25 YEARS AGO

REACTIONS (3)
  - Tardive dyskinesia [Unknown]
  - Obsessive-compulsive disorder [Unknown]
  - Drug ineffective [Unknown]
